FAERS Safety Report 18706985 (Version 2)
Quarter: 2021Q1

REPORT INFORMATION
  Report Type: Report from Study
  Country: CA (occurrence: CA)
  Receive Date: 20210106
  Receipt Date: 20210318
  Transmission Date: 20210419
  Serious: Yes (Hospitalization, Other)
  Sender: FDA-Public Use
  Company Number: CA-SHIRE-CA201501494

PATIENT
  Age: 16 Year
  Sex: Male

DRUGS (30)
  1. FERINSOL [Concomitant]
     Indication: SUPPLEMENTATION THERAPY
     Dosage: UNK
     Route: 048
     Dates: start: 20120715, end: 20130615
  2. CIPRO OTICO [Concomitant]
     Indication: OTITIS MEDIA
     Dosage: UNK
     Route: 050
     Dates: start: 20180122, end: 20180129
  3. IDURSULFASE [Suspect]
     Active Substance: IDURSULFASE
     Dosage: UNK
     Route: 042
  4. PIPERACILLIN/TAZOBACTAM [Concomitant]
     Active Substance: PIPERACILLIN SODIUM\TAZOBACTAM SODIUM
     Indication: URINARY TRACT INFECTION
     Dosage: UNK
     Route: 042
     Dates: start: 20150213, end: 20150223
  5. SYNTHROID [Concomitant]
     Active Substance: LEVOTHYROXINE SODIUM
     Indication: THYROID DISORDER
     Dosage: UNK
     Route: 048
     Dates: start: 201101
  6. IDURSULFASE [Suspect]
     Active Substance: IDURSULFASE
     Dosage: 0.54 MILLIGRAM/KILOGRAM, 1/WEEK
     Route: 042
     Dates: start: 20161114
  7. IDURSULFASE [Suspect]
     Active Substance: IDURSULFASE
     Dosage: 0.54 MILLIGRAM/KILOGRAM, 1/WEEK
     Route: 042
     Dates: start: 20180122
  8. CIPROFLOXACIN;DEXAMETHASONE [Concomitant]
     Active Substance: CIPROFLOXACIN\DEXAMETHASONE
     Dosage: UNK
     Route: 050
     Dates: start: 201510, end: 201510
  9. KEPPRA [Concomitant]
     Active Substance: LEVETIRACETAM
     Indication: SEIZURE
     Dosage: UNK
     Route: 048
     Dates: start: 20110712
  10. VANCOMYCIN [Concomitant]
     Active Substance: VANCOMYCIN
     Indication: VASCULAR DEVICE INFECTION
     Dosage: UNK
     Route: 042
     Dates: start: 20140912, end: 20140913
  11. IDURSULFASE [Suspect]
     Active Substance: IDURSULFASE
     Dosage: UNK, 1X/WEEK
     Route: 041
     Dates: start: 20080403
  12. IDURSULFASE [Suspect]
     Active Substance: IDURSULFASE
     Dosage: UNK
     Route: 065
  13. ENALAPRIL [Concomitant]
     Active Substance: ENALAPRIL
     Indication: CARDIOVASCULAR DISORDER
     Dosage: UNK
     Route: 048
     Dates: start: 20001118
  14. PREDNISOLONE. [Concomitant]
     Active Substance: PREDNISOLONE
     Indication: IMMUNE SYSTEM DISORDER
     Dosage: UNK
     Route: 048
     Dates: start: 201101, end: 201311
  15. TYLENOL [Concomitant]
     Active Substance: ACETAMINOPHEN
     Indication: PRODUCT USED FOR UNKNOWN INDICATION
     Dosage: UNK
     Route: 048
     Dates: start: 201403
  16. CIPROFLOXACIN;DEXAMETHASONE [Concomitant]
     Active Substance: CIPROFLOXACIN\DEXAMETHASONE
     Indication: EAR INFECTION
     Dosage: UNK
     Route: 050
     Dates: start: 20150222
  17. ALDACTAZIDE [Concomitant]
     Active Substance: HYDROCHLOROTHIAZIDE\SPIRONOLACTONE
     Indication: CARDIOVASCULAR DISORDER
     Dosage: UNK
     Route: 048
     Dates: start: 20001118, end: 201101
  18. PREDNISOLONE. [Concomitant]
     Active Substance: PREDNISOLONE
     Indication: STRESS
     Dosage: UNK
     Route: 048
     Dates: start: 20140912, end: 20140922
  19. IDURSULFASE [Suspect]
     Active Substance: IDURSULFASE
     Indication: MUCOPOLYSACCHARIDOSIS II
     Dosage: 0.54 MG/KG, 1X/WEEK
     Route: 041
     Dates: start: 20110425, end: 20141231
  20. TYLENOL [Concomitant]
     Active Substance: ACETAMINOPHEN
     Indication: INFUSION RELATED REACTION
     Dosage: UNK
     Route: 048
     Dates: start: 20150212, end: 20150212
  21. HUMATROPE [Concomitant]
     Active Substance: SOMATROPIN
     Indication: BLOOD GROWTH HORMONE
     Dosage: UNK
     Route: 058
     Dates: start: 20091118, end: 2016
  22. PIPERACILLIN/TAZOBACTAM [Concomitant]
     Active Substance: PIPERACILLIN SODIUM\TAZOBACTAM SODIUM
     Indication: BACTERAEMIA
     Dosage: UNK
     Route: 042
     Dates: start: 20141117
  23. VITAMIN D [VITAMIN D NOS] [Concomitant]
     Active Substance: VITAMIN D NOS
     Indication: PRODUCT USED FOR UNKNOWN INDICATION
     Dosage: UNK
     Route: 048
     Dates: start: 20080702
  24. PEDIAPRED [Concomitant]
     Active Substance: PREDNISOLONE SODIUM PHOSPHATE
     Indication: IMMUNE SYSTEM DISORDER
     Dosage: UNK
     Route: 048
     Dates: start: 201311
  25. CEFTAZIDIME. [Concomitant]
     Active Substance: CEFTAZIDIME
     Indication: URINARY TRACT INFECTION
     Dosage: UNK
     Route: 042
     Dates: start: 20150213, end: 20150213
  26. IDURSULFASE [Suspect]
     Active Substance: IDURSULFASE
     Dosage: 12 MG (2 VIALS) FOR 3 WEEKS, THEN 6 MG (1 VIAL) FOR 1 WEEK, 1X/WEEK
     Route: 041
     Dates: start: 20101007
  27. IDURSULFASE [Suspect]
     Active Substance: IDURSULFASE
     Dosage: 0.54 MG/KG, 1X/WEEK
     Route: 041
     Dates: start: 20150218
  28. TYLENOL [Concomitant]
     Active Substance: ACETAMINOPHEN
     Indication: ARTHRALGIA
     Dosage: UNK
     Route: 048
     Dates: start: 20130511, end: 20130521
  29. CIPRODEX [CIPROFLOXACIN LACTATE] [Concomitant]
     Indication: OTITIS MEDIA CHRONIC
     Dosage: UNK
     Route: 050
     Dates: start: 2003
  30. BARRIER CREAM [Concomitant]
     Indication: DERMATITIS DIAPER
     Dosage: UNK
     Route: 061
     Dates: start: 20140926

REACTIONS (3)
  - Pathogen resistance [Recovered/Resolved]
  - Urinary tract infection [Recovered/Resolved]
  - Seizure [Recovered/Resolved]

NARRATIVE: CASE EVENT DATE: 20150213
